FAERS Safety Report 21678293 (Version 1)
Quarter: 2022Q4

REPORT INFORMATION
  Report Type: Spontaneous
  Country: FR (occurrence: FR)
  Receive Date: 20221203
  Receipt Date: 20221203
  Transmission Date: 20230112
  Serious: Yes (Hospitalization)
  Sender: FDA-Public Use
  Company Number: None

PATIENT
  Age: 86 Year
  Sex: Female
  Weight: 67 kg

DRUGS (13)
  1. FUROSEMIDE [Suspect]
     Active Substance: FUROSEMIDE
     Indication: Cardiac failure
     Dosage: DURATION : 5 DAYS
     Route: 065
     Dates: start: 20220705, end: 20220710
  2. ACETAMINOPHEN [Suspect]
     Active Substance: ACETAMINOPHEN
     Indication: Pain
     Dosage: 1 TO 2 G/D , UNIT DOSE : 1 GRAM , FREQUENCY TIME : 1 DAY , THERAPY START DATE : NASK
     Route: 065
     Dates: end: 20220711
  3. FENTANYL [Suspect]
     Active Substance: FENTANYL
     Indication: Pain
     Dosage: FENTANYL 25 UG/H , UNIT DOSE : 1 DF , DURATION : 1 DAY
     Route: 065
     Dates: start: 20220708, end: 20220709
  4. LERCANIDIPINE HYDROCHLORIDE [Suspect]
     Active Substance: LERCANIDIPINE HYDROCHLORIDE
     Indication: Hypertension
     Dosage: CHLORHYDRATE DE LERCANIDIPINE , UNIT DOSE : 20 MG , FREQUENCY TIME : 1 DAY , THERAPY START DATE : NA
     Dates: end: 20220710
  5. RAMIPRIL [Suspect]
     Active Substance: RAMIPRIL
     Indication: Hypertension
     Dosage: UNIT DOSE : 5 MG , FREQUENCY TIME : 1 DAY , THERAPY START DATE : NASK
     Dates: end: 20220710
  6. METOCLOPRAMIDE [Suspect]
     Active Substance: METOCLOPRAMIDE
     Indication: Nausea
     Dosage: UNIT DOSE : 20 MG , DURATION : 1 DAY
     Dates: start: 20220710, end: 20220710
  7. SKENAN [Suspect]
     Active Substance: MORPHINE SULFATE
     Indication: Pain
     Dosage: FORM STRENGTH : 30 MG, SUSTAINED-RELEASE MICROGRANULES IN CAPSULE , UNIT DOSE : 3 DF , DURATION : 1
     Dates: start: 20220709, end: 20220710
  8. IPRATROPIUM BROMIDE [Concomitant]
     Active Substance: IPRATROPIUM BROMIDE
     Indication: Product used for unknown indication
  9. VITAMIN B12 [Concomitant]
     Active Substance: CYANOCOBALAMIN
     Indication: Product used for unknown indication
  10. HUMALOG [Concomitant]
     Active Substance: INSULIN LISPRO
     Indication: Product used for unknown indication
  11. TERBUTALINE SULFATE [Concomitant]
     Active Substance: TERBUTALINE SULFATE
     Indication: Product used for unknown indication
     Dosage: TERBUTALINE (SULFATE DE)
  12. BISOPROLOL FUMARATE [Concomitant]
     Active Substance: BISOPROLOL FUMARATE
     Indication: Product used for unknown indication
     Dosage: BISOPROLOL (FUMARATE ACIDE DE)
  13. INSULIN GLARGINE [Concomitant]
     Active Substance: INSULIN GLARGINE
     Indication: Product used for unknown indication

REACTIONS (2)
  - Acute kidney injury [Recovered/Resolved]
  - Hyperkalaemia [Recovered/Resolved]

NARRATIVE: CASE EVENT DATE: 20220711
